FAERS Safety Report 9847263 (Version 2)
Quarter: 2014Q1

REPORT INFORMATION
  Report Type: Spontaneous
  Country: US (occurrence: US)
  Receive Date: 20140127
  Receipt Date: 20140127
  Transmission Date: 20141002
  Serious: Yes (Hospitalization)
  Sender: FDA-Public Use
  Company Number: US-DYAX CORP.-2012DX000186

PATIENT
  Age: 65 Year
  Sex: Female
  Weight: 108.05 kg

DRUGS (42)
  1. KALBITOR [Suspect]
     Indication: HEREDITARY ANGIOEDEMA
     Route: 058
     Dates: start: 20120819, end: 20120819
  2. KALBITOR [Suspect]
     Route: 058
     Dates: start: 20120814, end: 20120814
  3. KALBITOR [Suspect]
     Route: 058
     Dates: start: 20111103
  4. KALBITOR [Suspect]
  5. KALBITOR [Suspect]
  6. KALBITOR [Suspect]
  7. BYETTA [Concomitant]
     Indication: DIABETES MELLITUS
     Route: 048
     Dates: start: 2009
  8. METFORMIN [Concomitant]
     Indication: DIABETES MELLITUS
     Route: 048
     Dates: start: 2005
  9. PREVACID [Concomitant]
     Indication: GASTROOESOPHAGEAL REFLUX DISEASE
     Route: 048
     Dates: start: 2006
  10. CARTIA [Concomitant]
     Indication: HYPERTENSION
     Route: 048
     Dates: start: 2010
  11. HYDROCHLOROTHIAZIDE [Concomitant]
     Indication: HYPERTENSION
     Route: 048
     Dates: start: 2010
  12. ZOCOR [Concomitant]
     Indication: DIABETES MELLITUS
     Route: 048
     Dates: start: 2009
  13. ZOCOR [Concomitant]
     Indication: HYPERTENSION
  14. ZOLOFT [Concomitant]
     Indication: ANXIETY
     Dates: start: 2010
  15. ZOLOFT [Concomitant]
     Indication: DEPRESSION
  16. ZYRTEC [Concomitant]
     Indication: HYPERSENSITIVITY
     Route: 048
     Dates: start: 2009
  17. SINGULAIR [Concomitant]
     Indication: HYPERSENSITIVITY
     Route: 048
     Dates: start: 2009
  18. FLOVENT [Concomitant]
     Indication: ASTHMA
     Dosage: DRUG ROUTE: INHALATION
     Dates: start: 2010
  19. COENZYME Q10 [Concomitant]
     Indication: SUPPLEMENTATION THERAPY
     Route: 048
     Dates: start: 20120801
  20. VITAMIN D [Concomitant]
     Indication: PRODUCT USED FOR UNKNOWN INDICATION
     Route: 048
     Dates: start: 201101
  21. VITAMIN B COMPLEX [Concomitant]
     Indication: SUPPLEMENTATION THERAPY
     Route: 048
     Dates: start: 20120801
  22. COMBIVENT [Concomitant]
     Indication: ASTHMA
     Dosage: DRUG ROUTE: INHALATION
     Dates: start: 2010
  23. COMBIVENT [Concomitant]
     Indication: WHEEZING
     Dosage: DRUG ROUTE: INHALATION
     Dates: start: 20111103, end: 20111103
  24. COMBIVENT [Concomitant]
     Dosage: DRUG ROUTE: INHALATION
     Dates: start: 20120124, end: 20120124
  25. SOLU-MEDROL [Concomitant]
     Indication: HEREDITARY ANGIOEDEMA
     Dosage: DRUG ROUTE: INTRAVENOUS
     Route: 042
     Dates: start: 20120803, end: 20120803
  26. SOLU-MEDROL [Concomitant]
     Indication: HEREDITARY ANGIOEDEMA
     Dosage: DRUG ROUTE: INTRAVENOUS
     Route: 042
     Dates: start: 20120625, end: 20120625
  27. SOLU-MEDROL [Concomitant]
     Dosage: DRUG ROUTE: INTRAVENOUS
     Route: 042
     Dates: start: 20120719, end: 20120719
  28. SOLU-MEDROL [Concomitant]
     Dosage: DRUG ROUTE: INTRAVENOUS
     Route: 042
     Dates: start: 20120814, end: 20120814
  29. TORADOL [Concomitant]
     Indication: HEREDITARY ANGIOEDEMA
     Dosage: DRUG ROUTE: INTRAVENOUS
     Route: 042
     Dates: start: 20120803, end: 20120803
  30. BENADRYL [Concomitant]
     Indication: HEREDITARY ANGIOEDEMA
     Dosage: DRUG ROUTE: INTRAVENOUS
     Route: 042
     Dates: start: 20111103, end: 20111103
  31. BENADRYL [Concomitant]
     Indication: HEREDITARY ANGIOEDEMA
     Dosage: DRUG ROUTE: INTRAVENOUS
     Route: 042
     Dates: start: 20120625, end: 20120625
  32. BENADRYL [Concomitant]
     Dosage: DRUG ROUTE: INTRAVENOUS
     Route: 042
     Dates: start: 20120719, end: 20120719
  33. BENADRYL [Concomitant]
     Dosage: DRUG ROUTE: INTRAVENOUS
     Route: 042
     Dates: start: 20120814, end: 20120814
  34. PEPCID [Concomitant]
     Indication: ANGIOEDEMA
     Dosage: DRUG ROUTE: INTRAVENOUS
     Route: 042
     Dates: start: 20111103, end: 20111103
  35. PEPCID [Concomitant]
     Dosage: DRUG ROUTE: INTRAVENOUS
     Route: 042
     Dates: start: 20120719, end: 20120719
  36. PEPCID [Concomitant]
     Dosage: DRUG ROUTE: INTRAVENOUS
     Route: 042
     Dates: start: 20120814, end: 20120814
  37. FAMOTIDINE [Concomitant]
     Indication: HEREDITARY ANGIOEDEMA
     Dosage: DRUG ROUTE: INTRAVENOUS
     Route: 042
     Dates: start: 20120625, end: 20120625
  38. DILAUDID [Concomitant]
     Indication: HEREDITARY ANGIOEDEMA
     Route: 030
     Dates: start: 20120703, end: 20120703
  39. DILAUDID [Concomitant]
     Route: 030
     Dates: start: 20120719, end: 20120719
  40. ZOFRAN [Concomitant]
     Indication: HEREDITARY ANGIOEDEMA
     Dosage: DRUG ROUTE: INTRAVENOUS
     Route: 042
     Dates: start: 20120719, end: 20120719
  41. LECITHIN [Concomitant]
     Indication: SUPPLEMENTATION THERAPY
     Route: 048
     Dates: start: 20120620, end: 20120706
  42. CINNAMON [Concomitant]
     Indication: SUPPLEMENTATION THERAPY
     Route: 048
     Dates: start: 20120620, end: 20120706

REACTIONS (7)
  - Drug ineffective for unapproved indication [Recovered/Resolved]
  - Malaise [Recovered/Resolved]
  - Hereditary angioedema [Recovered/Resolved]
  - Nasopharyngitis [Unknown]
  - Nausea [Recovered/Resolved]
  - Vomiting [Recovered/Resolved]
  - Extra dose administered [Recovered/Resolved]
